FAERS Safety Report 9554971 (Version 1)
Quarter: 2013Q3

REPORT INFORMATION
  Report Type: Other
  Country: US (occurrence: US)
  Receive Date: 20130926
  Receipt Date: 20130926
  Transmission Date: 20140515
  Serious: Yes (Life-Threatening)
  Sender: FDA-Public Use
  Company Number: US-BRISTOL-MYERS SQUIBB COMPANY-19423128

PATIENT
  Age: 56 Year
  Sex: Female

DRUGS (3)
  1. TRIAMCINOLONE ACE OINTMENT [Suspect]
     Indication: RASH
     Dosage: TRIAMCINOLONE 0.1% OINTMENT
  2. TELAPREVIR [Interacting]
     Indication: CHRONIC HEPATITIS C
  3. CLOBETASOL [Interacting]
     Indication: RASH
     Dosage: CLOBETASOL 0.05%
     Route: 061

REACTIONS (2)
  - Adrenal insufficiency [Unknown]
  - Drug interaction [Unknown]
